FAERS Safety Report 8172536-1 (Version None)
Quarter: 2012Q1

REPORT INFORMATION
  Report Type: 
  Country: None (occurrence: None)
  Receive Date: 20120229
  Receipt Date: 20120224
  Transmission Date: 20120608
  Serious: Yes (Death)
  Sender: FDA-Public Use
  Company Number: US-JNJFOC-20120213274

PATIENT
  Sex: Male

DRUGS (1)
  1. DURAGESIC-100 [Suspect]
     Indication: NEOPLASM MALIGNANT
     Route: 062

REACTIONS (1)
  - DEATH [None]
